FAERS Safety Report 8327046-5 (Version None)
Quarter: 2012Q2

REPORT INFORMATION
  Report Type: 
  Country: None (occurrence: None)
  Receive Date: 20120501
  Receipt Date: 20120424
  Transmission Date: 20120825
  Serious: Yes (Hospitalization, Other)
  Sender: FDA-Public Use
  Company Number: IT-ABBOTT-12P-083-0917452-00

PATIENT
  Sex: Female
  Weight: 71 kg

DRUGS (2)
  1. HUMIRA [Suspect]
     Indication: PSORIASIS
     Dosage: (80MG), 1 WEEK
     Dates: start: 20120301, end: 20120320
  2. ANTIHYPERTENSIVE AGENT [Concomitant]
     Indication: HYPERTENSION

REACTIONS (6)
  - INCORRECT DOSE ADMINISTERED [None]
  - ARTERIOSCLEROSIS [None]
  - DYSPNOEA [None]
  - FATIGUE [None]
  - CORONARY ARTERY STENOSIS [None]
  - MYOCARDIAL INFARCTION [None]
